FAERS Safety Report 10341778 (Version 9)
Quarter: 2017Q2

REPORT INFORMATION
  Report Type: Report from Study
  Country: BR (occurrence: BR)
  Receive Date: 20140725
  Receipt Date: 20170424
  Transmission Date: 20170829
  Serious: Yes (Hospitalization, Other)
  Sender: FDA-Public Use
  Company Number: BR-ROCHE-1342565

PATIENT
  Sex: Female
  Weight: 85 kg

DRUGS (11)
  1. ACTEMRA [Suspect]
     Active Substance: TOCILIZUMAB
     Indication: RHEUMATOID ARTHRITIS
     Route: 042
     Dates: start: 20111201
  2. GLIFAGE [Concomitant]
     Active Substance: METFORMIN HYDROCHLORIDE
  3. BENERVA [Concomitant]
     Active Substance: THIAMINE
  4. LOSARTAN. [Concomitant]
     Active Substance: LOSARTAN
     Indication: HYPERTENSION
     Route: 065
  5. LIPITOR [Concomitant]
     Active Substance: ATORVASTATIN CALCIUM
     Route: 065
  6. ACTEMRA [Suspect]
     Active Substance: TOCILIZUMAB
     Route: 042
     Dates: start: 20151001
  7. CORTISONE [Suspect]
     Active Substance: CORTISONE\HYDROCORTISONE
     Indication: PRODUCT USED FOR UNKNOWN INDICATION
     Route: 065
  8. INSULIN [Concomitant]
     Active Substance: INSULIN NOS
     Indication: DIABETES MELLITUS
  9. RIVOTRIL [Concomitant]
     Active Substance: CLONAZEPAM
     Dosage: HALF TABLET/DAY
     Route: 048
  10. NORMAL SALINE [Suspect]
     Active Substance: SODIUM CHLORIDE
     Indication: PRODUCT USED FOR UNKNOWN INDICATION
     Route: 042
  11. NPH INSULIN [Concomitant]
     Active Substance: INSULIN BEEF

REACTIONS (13)
  - Rash erythematous [Unknown]
  - Arthritis [Unknown]
  - Pruritus [Unknown]
  - Catheter site haemorrhage [Unknown]
  - Cataract [Unknown]
  - Musculoskeletal disorder [Unknown]
  - Urinary tract infection [Recovering/Resolving]
  - Musculoskeletal disorder [Recovering/Resolving]
  - Pain in extremity [Recovered/Resolved]
  - Nosocomial infection [Recovered/Resolved]
  - Musculoskeletal pain [Recovered/Resolved]
  - Osteoarthritis [Recovering/Resolving]
  - Swelling [Unknown]
